FAERS Safety Report 20041571 (Version 2)
Quarter: 2021Q4

REPORT INFORMATION
  Report Type: Report from Study
  Country: US (occurrence: US)
  Receive Date: 20211108
  Receipt Date: 20211208
  Transmission Date: 20220304
  Serious: No
  Sender: FDA-Public Use
  Company Number: US-NOVARTISTESTPH-NVSC2021US252725

PATIENT
  Age: 74 Year
  Sex: Female

DRUGS (2)
  1. PIQRAY [Suspect]
     Active Substance: ALPELISIB
     Indication: Breast cancer
     Dosage: 300 MG, QD
     Route: 048
     Dates: start: 20211018, end: 20211029
  2. PIQRAY [Suspect]
     Active Substance: ALPELISIB
     Dosage: 150 UNK
     Route: 065

REACTIONS (10)
  - Pain in extremity [Unknown]
  - Skin exfoliation [Unknown]
  - Dyspnoea [Unknown]
  - Peripheral swelling [Unknown]
  - Insomnia [Unknown]
  - Rash [Recovering/Resolving]
  - Fatigue [Unknown]
  - Haemoglobin decreased [Unknown]
  - Pruritus [Unknown]
  - Alopecia [Unknown]

NARRATIVE: CASE EVENT DATE: 20211027
